FAERS Safety Report 25318970 (Version 1)
Quarter: 2025Q2

REPORT INFORMATION
  Report Type: Spontaneous
  Country: EG (occurrence: EG)
  Receive Date: 20250515
  Receipt Date: 20250515
  Transmission Date: 20250717
  Serious: Yes (Hospitalization, Other)
  Sender: HIKMA
  Company Number: EG-HIKMA PHARMACEUTICALS-EG-H14001-25-04056

PATIENT
  Age: 52 Year
  Sex: Female
  Weight: 55 kg

DRUGS (5)
  1. FEBUXOSTAT [Suspect]
     Active Substance: FEBUXOSTAT
     Indication: Hypothyroidism
     Dosage: 40 MILLIGRAM, QD
     Route: 048
  2. FEBUXOSTAT [Suspect]
     Active Substance: FEBUXOSTAT
     Indication: Gout
  3. LEVOTHYROXINE [Concomitant]
     Active Substance: LEVOTHYROXINE
     Indication: Product used for unknown indication
     Route: 048
  4. NEBIVOLOL HYDROCHLORIDE [Concomitant]
     Active Substance: NEBIVOLOL HYDROCHLORIDE
     Indication: Product used for unknown indication
     Route: 048
  5. TORSEMIDE [Concomitant]
     Active Substance: TORSEMIDE
     Indication: Product used for unknown indication
     Route: 048

REACTIONS (4)
  - Pain [Recovering/Resolving]
  - Vomiting [Recovering/Resolving]
  - Blood creatinine increased [Recovering/Resolving]
  - Pleural effusion [Recovering/Resolving]

NARRATIVE: CASE EVENT DATE: 20250405
